FAERS Safety Report 10142018 (Version 1)
Quarter: 2014Q2

REPORT INFORMATION
  Report Type: Spontaneous
  Country: US (occurrence: US)
  Receive Date: 20140429
  Receipt Date: 20140429
  Transmission Date: 20141212
  Serious: No
  Sender: FDA-Public Use
  Company Number: US-B.I. PHARMACEUTICALS,INC./RIDGEFIELD-2014-BI-18183BP

PATIENT
  Sex: Female

DRUGS (5)
  1. CATAPRES [Suspect]
     Indication: PRODUCT USED FOR UNKNOWN INDICATION
     Route: 065
  2. HYDRALAZINE [Concomitant]
     Indication: BLOOD PRESSURE
     Route: 065
     Dates: start: 2009
  3. HYDRALAZINE [Concomitant]
     Dosage: 75 MG
     Route: 065
     Dates: start: 2009
  4. HYDRALAZINE [Concomitant]
     Dosage: DOSE PER APPLICATION AND DAILY DOSE: ABOUT 18 MG THREE TIMES A DAY
     Route: 065
     Dates: start: 2009
  5. PLAVIX [Concomitant]
     Route: 065

REACTIONS (1)
  - Blood pressure increased [Unknown]
